FAERS Safety Report 16234909 (Version 1)
Quarter: 2019Q2

REPORT INFORMATION
  Report Type: Spontaneous
  Country: GB (occurrence: GB)
  Receive Date: 20190424
  Receipt Date: 20190424
  Transmission Date: 20190711
  Serious: Yes (Disabling)
  Sender: FDA-Public Use
  Company Number: GB-TEVA-2019-GB-1040960

PATIENT
  Age: 60 Year
  Sex: Female

DRUGS (1)
  1. TEVA UK ANASTROZOLE [Suspect]
     Active Substance: ANASTROZOLE
     Indication: BREAST CANCER
     Dosage: 1 MILLIGRAM DAILY;
     Route: 048
     Dates: start: 20180630, end: 20190104

REACTIONS (10)
  - Bone pain [Unknown]
  - Trigger finger [Unknown]
  - Fatigue [Unknown]
  - Musculoskeletal pain [Unknown]
  - Pain in extremity [Unknown]
  - Paranasal sinus hyposecretion [Unknown]
  - Tendon discomfort [Not Recovered/Not Resolved]
  - Dysstasia [Unknown]
  - Dry mouth [Unknown]
  - Insomnia [Unknown]

NARRATIVE: CASE EVENT DATE: 20180731
